FAERS Safety Report 17718712 (Version 1)
Quarter: 2020Q2

REPORT INFORMATION
  Report Type: Spontaneous
  Country: US (occurrence: US)
  Receive Date: 20200428
  Receipt Date: 20200428
  Transmission Date: 20200714
  Serious: Yes (Other)
  Sender: FDA-Public Use
  Company Number: None

PATIENT
  Age: 67 Year
  Sex: Male
  Weight: 58.5 kg

DRUGS (1)
  1. GAMUNEX-C [Suspect]
     Active Substance: HUMAN IMMUNOGLOBULIN G
     Indication: POLYNEUROPATHY
     Dosage: ?          OTHER FREQUENCY:Q 4 WKS.;?
     Route: 042

REACTIONS (4)
  - Fatigue [None]
  - Hallucination [None]
  - Confusional state [None]
  - Therapy interrupted [None]

NARRATIVE: CASE EVENT DATE: 20200424
